FAERS Safety Report 18234616 (Version 1)
Quarter: 2020Q3

REPORT INFORMATION
  Report Type: Spontaneous
  Country: GR (occurrence: GR)
  Receive Date: 20200904
  Receipt Date: 20200904
  Transmission Date: 20201103
  Serious: Yes (Other)
  Sender: FDA-Public Use
  Company Number: NVSC2020GR241640

PATIENT
  Age: 71 Year
  Sex: Male

DRUGS (1)
  1. PAZOPANIB [Suspect]
     Active Substance: PAZOPANIB
     Indication: PRODUCT USED FOR UNKNOWN INDICATION
     Dosage: 800 MG, QD
     Route: 065

REACTIONS (5)
  - Large intestine perforation [Unknown]
  - Colorectal cancer metastatic [Unknown]
  - Peritonitis [Unknown]
  - Malignant fibrous histiocytoma recurrent [Unknown]
  - Product use in unapproved indication [Unknown]
